FAERS Safety Report 11173328 (Version 1)
Quarter: 2015Q2

REPORT INFORMATION
  Report Type: Spontaneous
  Country: US (occurrence: US)
  Receive Date: 20150608
  Receipt Date: 20150608
  Transmission Date: 20150821
  Serious: Yes (Hospitalization)
  Sender: FDA-Public Use
  Company Number: US-MYLANLABS-2015M1018493

PATIENT

DRUGS (2)
  1. PAMIDRONATE [Suspect]
     Active Substance: PAMIDRONATE DISODIUM
     Indication: OFF LABEL USE
     Dosage: PLANNED 1MG/KG IN NORMAL SALINE IN 4 HOURS
     Route: 041
  2. PAMIDRONATE [Suspect]
     Active Substance: PAMIDRONATE DISODIUM
     Indication: OSTEOGENESIS IMPERFECTA
     Dosage: 0.5MG/KG IN NORMAL SALINE IN 4 HOURS FIRST INFUSION
     Route: 041

REACTIONS (1)
  - Respiratory failure [Recovered/Resolved]
